FAERS Safety Report 13328985 (Version 1)
Quarter: 2017Q1

REPORT INFORMATION
  Report Type: Spontaneous
  Country: US (occurrence: US)
  Receive Date: 20170310
  Receipt Date: 20170310
  Transmission Date: 20170428
  Serious: Yes (Hospitalization)
  Sender: FDA-Public Use
  Company Number: None

PATIENT
  Age: 32 Year
  Sex: Female

DRUGS (1)
  1. LETAIRIS [Suspect]
     Active Substance: AMBRISENTAN
     Indication: PULMONARY ARTERIAL HYPERTENSION
     Route: 048
     Dates: start: 20100702

REACTIONS (5)
  - Blood culture positive [None]
  - Staphylococcal infection [None]
  - Catheter site pain [None]
  - Beta haemolytic streptococcal infection [None]
  - Device related infection [None]

NARRATIVE: CASE EVENT DATE: 20170216
